FAERS Safety Report 17530111 (Version 2)
Quarter: 2020Q1

REPORT INFORMATION
  Report Type: Spontaneous
  Country: SE (occurrence: SE)
  Receive Date: 20200311
  Receipt Date: 20200326
  Transmission Date: 20200409
  Serious: Yes (Hospitalization)
  Sender: FDA-Public Use
  Company Number: SE-JNJFOC-20200243948

PATIENT
  Age: 50 Year
  Sex: Female

DRUGS (4)
  1. REMICADE [Suspect]
     Active Substance: INFLIXIMAB
     Indication: RHEUMATOID ARTHRITIS
     Route: 042
     Dates: start: 200006
  2. METHOTREXATE. [Concomitant]
     Active Substance: METHOTREXATE
     Indication: RHEUMATOID ARTHRITIS
     Route: 065
  3. REMICADE [Suspect]
     Active Substance: INFLIXIMAB
     Dosage: SECOND 2 WEEKS LATER
     Route: 042
     Dates: start: 2000
  4. REMICADE [Suspect]
     Active Substance: INFLIXIMAB
     Dosage: THIRD INFUSION
     Route: 042
     Dates: start: 200007

REACTIONS (1)
  - Palmoplantar pustulosis [Unknown]

NARRATIVE: CASE EVENT DATE: 200007
